FAERS Safety Report 8824063 (Version 1)
Quarter: 2012Q4

REPORT INFORMATION
  Report Type: Report from Study
  Country: JP (occurrence: JP)
  Receive Date: 20121003
  Receipt Date: 20121003
  Transmission Date: 20130627
  Serious: Yes (Other)
  Sender: FDA-Public Use
  Company Number: JP-BRISTOL-MYERS SQUIBB COMPANY-16993933

PATIENT
  Age: 33 Year
  Sex: Female

DRUGS (9)
  1. WARFARIN SODIUM [Suspect]
     Route: 048
  2. AMBRISENTAN [Concomitant]
     Indication: PULMONARY ARTERIAL HYPERTENSION
     Dosage: Volibris, 1DF: 7Mar12-25Apr12:2.5mg,49 days, 26Apr12-08jun12:5mg,42days(Tab)
     Route: 048
     Dates: start: 20120307, end: 20120608
  3. REVATIO [Concomitant]
  4. CYCLOSPORIN [Concomitant]
  5. PREDNISOLONE [Concomitant]
  6. AZATHIOPRINE [Concomitant]
     Dosage: Athioprine
  7. BERAPROST SODIUM [Concomitant]
     Dosage: Careload
  8. IMURAN [Concomitant]
  9. NEORAL [Concomitant]

REACTIONS (5)
  - Headache [Recovered/Resolved]
  - Anaemia [Not Recovered/Not Resolved]
  - Haemorrhage [Not Recovered/Not Resolved]
  - Uterine cervical erosion [Not Recovered/Not Resolved]
  - Pregnancy [Unknown]
